FAERS Safety Report 6357763-8 (Version None)
Quarter: 2009Q3

REPORT INFORMATION
  Report Type: 
  Country: None (occurrence: None)
  Receive Date: 20090916
  Receipt Date: 20090904
  Transmission Date: 20100115
  Serious: Yes (Death)
  Sender: FDA-Public Use
  Company Number: US-PFIZER INC-2009256534

PATIENT
  Sex: Male

DRUGS (1)
  1. VFEND [Suspect]
     Dosage: 200 MG, 2X/DAY

REACTIONS (2)
  - CHEMOTHERAPY [None]
  - STAPHYLOCOCCAL INFECTION [None]
